FAERS Safety Report 23753035 (Version 1)
Quarter: 2024Q2

REPORT INFORMATION
  Report Type: Report from Study
  Country: US (occurrence: None)
  Receive Date: 20240417
  Receipt Date: 20240417
  Transmission Date: 20240715
  Serious: Yes (Other)
  Sender: FDA-Public Use
  Company Number: 2024A085959

PATIENT
  Sex: Female
  Weight: 66 kg

DRUGS (2)
  1. TRUQAP [Suspect]
     Active Substance: CAPIVASERTIB
     Indication: Breast cancer female
     Route: 048
  2. CAPECITABINE [Concomitant]
     Active Substance: CAPECITABINE

REACTIONS (5)
  - Fall [Unknown]
  - Cerebral haemorrhage [Unknown]
  - Mouth haemorrhage [Unknown]
  - Stomatitis [Unknown]
  - Diarrhoea [Unknown]
